FAERS Safety Report 19877871 (Version 1)
Quarter: 2021Q3

REPORT INFORMATION
  Report Type: Spontaneous
  Country: US (occurrence: US)
  Receive Date: 20210923
  Receipt Date: 20210923
  Transmission Date: 20211014
  Serious: No
  Sender: FDA-Public Use
  Company Number: US-MATRIXX INITIATIVES, INC.-2118736

PATIENT
  Age: 32 Year
  Sex: Female
  Weight: 56.82 kg

DRUGS (1)
  1. ZICAM INTENSE SINUS RELIEF [Suspect]
     Active Substance: OXYMETAZOLINE HYDROCHLORIDE
     Indication: NASOPHARYNGITIS
     Route: 045
     Dates: start: 20210919, end: 20210919

REACTIONS (3)
  - Anosmia [Not Recovered/Not Resolved]
  - Nasal discomfort [Recovered/Resolved]
  - Ageusia [Not Recovered/Not Resolved]
